FAERS Safety Report 7077444-5 (Version None)
Quarter: 2010Q4

REPORT INFORMATION
  Report Type: 
  Country: None (occurrence: None)
  Receive Date: 20101025
  Receipt Date: 20101008
  Transmission Date: 20110411
  Serious: Yes (Hospitalization)
  Sender: FDA-Public Use
  Company Number: 020113

PATIENT
  Sex: Male
  Weight: 46.7 kg

DRUGS (10)
  1. CIMZIA [Suspect]
     Indication: CROHN'S DISEASE
     Dosage: (200 MG 1X/2 WEEKS SUBCUTANEOUS)
     Route: 058
     Dates: start: 20090130, end: 20100101
  2. PREDNISONE [Concomitant]
  3. MEGACE [Concomitant]
  4. FOLIC ACID [Concomitant]
  5. PROMETHAZINE [Concomitant]
  6. ROXICODONE [Concomitant]
  7. MIRAPEX [Concomitant]
  8. PRAZOSIN HYDROCHLORIDE [Concomitant]
  9. LORAZEPAM [Concomitant]
  10. METHADONE HCL [Concomitant]

REACTIONS (4)
  - CONDITION AGGRAVATED [None]
  - CROHN'S DISEASE [None]
  - MALNUTRITION [None]
  - PNEUMONIA [None]
